FAERS Safety Report 5739062-8 (Version None)
Quarter: 2008Q2

REPORT INFORMATION
  Report Type: 
  Country: None (occurrence: None)
  Receive Date: 20080515
  Receipt Date: 20080508
  Transmission Date: 20081010
  Serious: Yes (Other)
  Sender: FDA-Public Use
  Company Number: US-ASTRAZENECA-2008AC01210

PATIENT
  Age: 84 Year
  Sex: Male

DRUGS (6)
  1. QUETIAPINE FUMARATE [Suspect]
     Indication: DELUSION
  2. MORPHINE [Interacting]
     Dosage: EXTENDED RELEASED
  3. FUROSEMIDE [Concomitant]
  4. ENALAPRIL MALEATE [Concomitant]
  5. ASPIRIN [Concomitant]
  6. STOOL SOFTENERS [Concomitant]

REACTIONS (2)
  - DRUG INTERACTION [None]
  - UNRESPONSIVE TO STIMULI [None]
